FAERS Safety Report 10355662 (Version 2)
Quarter: 2014Q3

REPORT INFORMATION
  Report Type: Spontaneous
  Country: US (occurrence: US)
  Receive Date: 20140731
  Receipt Date: 20140915
  Transmission Date: 20150326
  Serious: No
  Sender: FDA-Public Use
  Company Number: US-009507513-1407USA014347

PATIENT
  Age: 26 Year
  Sex: Female
  Weight: 67.12 kg

DRUGS (2)
  1. CALCIUM (UNSPECIFIED) [Concomitant]
     Active Substance: CALCIUM
  2. NEXPLANON [Suspect]
     Active Substance: ETONOGESTREL
     Indication: CONTRACEPTION
     Dosage: 1 IMPLANT UP TO 3 YEARS
     Route: 059
     Dates: start: 20120918

REACTIONS (2)
  - Menstruation normal [Recovered/Resolved]
  - Metrorrhagia [Recovered/Resolved]

NARRATIVE: CASE EVENT DATE: 20140624
